FAERS Safety Report 4741494-1 (Version None)
Quarter: 2005Q3

REPORT INFORMATION
  Report Type: 
  Country: None (occurrence: None)
  Receive Date: 20050810
  Receipt Date: 20050719
  Transmission Date: 20060218
  Serious: Yes (Hospitalization)
  Sender: FDA-Public Use
  Company Number: JP-BRISTOL-MYERS SQUIBB COMPANY-13053939

PATIENT
  Age: 34 Year
  Sex: Male

DRUGS (7)
  1. CISPLATIN [Suspect]
     Indication: TESTIS CANCER
     Dates: start: 20020413, end: 20020417
  2. ETOPOSIDE [Suspect]
     Indication: TESTIS CANCER
     Dates: start: 20020413, end: 20020417
  3. BLEOMYCIN SULFATE [Suspect]
     Indication: TESTIS CANCER
     Dates: start: 20020412, end: 20020412
  4. IFOSFAMIDE [Suspect]
     Indication: TESTIS CANCER
     Dates: start: 20021018, end: 20021021
  5. PACLITAXEL [Suspect]
     Indication: TESTIS CANCER
     Dates: start: 20021017, end: 20021017
  6. PHENYTOIN [Concomitant]
     Dates: end: 20020410
  7. VALPROIC ACID [Concomitant]
     Indication: EPILEPSY
     Route: 048

REACTIONS (2)
  - GRAND MAL CONVULSION [None]
  - RED BLOOD CELL COUNT DECREASED [None]
